FAERS Safety Report 10417291 (Version 2)
Quarter: 2015Q3

REPORT INFORMATION
  Report Type: Spontaneous
  Country: US (occurrence: US)
  Receive Date: 20140828
  Receipt Date: 20150806
  Transmission Date: 20151125
  Serious: No
  Sender: FDA-Public Use
  Company Number: US-ENDO PHARMACEUTICALS INC.-PRED20140037

PATIENT
  Sex: Male
  Weight: 79.45 kg

DRUGS (3)
  1. PREDNISONE TABLETS [Suspect]
     Active Substance: PREDNISONE
     Route: 048
     Dates: end: 20140420
  2. PREDNISONE TABLETS [Suspect]
     Active Substance: PREDNISONE
     Indication: PRODUCT USED FOR UNKNOWN INDICATION
     Route: 048
     Dates: start: 20130710, end: 2014
  3. PREDNISONE TABLETS [Suspect]
     Active Substance: PREDNISONE
     Route: 048

REACTIONS (9)
  - Weight increased [Recovering/Resolving]
  - Swelling face [Unknown]
  - Hyperhidrosis [Unknown]
  - Nausea [Unknown]
  - Abdominal discomfort [Recovering/Resolving]
  - Haematochezia [Recovered/Resolved]
  - Headache [Unknown]
  - Chills [Unknown]
  - Crohn^s disease [Not Recovered/Not Resolved]

NARRATIVE: CASE EVENT DATE: 2014
